FAERS Safety Report 7761881-7 (Version None)
Quarter: 2011Q3

REPORT INFORMATION
  Report Type: 
  Country: None (occurrence: None)
  Receive Date: 20110920
  Receipt Date: 20110916
  Transmission Date: 20111222
  Serious: Yes (Other)
  Sender: FDA-Public Use
  Company Number: FR-SANOFI-AVENTIS-2011SA060360

PATIENT
  Age: 52 Year
  Sex: Female

DRUGS (6)
  1. ASPIRIN [Concomitant]
     Route: 065
  2. PAROXETINE [Concomitant]
     Route: 065
  3. METFORMIN HCL [Concomitant]
     Route: 065
  4. RIFAMPIN AND ISONIAZID [Suspect]
     Indication: TUBERCULOSIS
     Route: 048
     Dates: start: 20110201, end: 20110401
  5. BISOPROLOL FUMARATE [Concomitant]
     Route: 065
  6. IRBESARTAN AND HYDROCHLOROTHIAZIDE [Concomitant]
     Route: 065

REACTIONS (3)
  - MYALGIA [None]
  - ROTATOR CUFF SYNDROME [None]
  - ARTHRALGIA [None]
